FAERS Safety Report 16482937 (Version 3)
Quarter: 2019Q3

REPORT INFORMATION
  Report Type: Report from Study
  Country: CA (occurrence: CA)
  Receive Date: 20190627
  Receipt Date: 20190708
  Transmission Date: 20191004
  Serious: Yes (Other)
  Sender: FDA-Public Use
  Company Number: CA-BEH-2019103502

PATIENT
  Age: 36 Year
  Sex: Male
  Weight: 97 kg

DRUGS (4)
  1. BERINERT [Suspect]
     Active Substance: HUMAN C1-ESTERASE INHIBITOR
     Indication: HEREDITARY ANGIOEDEMA WITH C1 ESTERASE INHIBITOR DEFICIENCY
     Dosage: 6000 INTERNATIONAL UNIT, BIW
     Route: 058
     Dates: start: 20190611
  2. BERINERT [Suspect]
     Active Substance: HUMAN C1-ESTERASE INHIBITOR
     Indication: HEREDITARY ANGIOEDEMA WITH C1 ESTERASE INHIBITOR DEFICIENCY
     Dosage: 6000 INTERNATIONAL UNIT, BIW
     Route: 058
     Dates: start: 20190611
  3. BERINERT [Suspect]
     Active Substance: HUMAN C1-ESTERASE INHIBITOR
     Indication: PROPHYLAXIS
     Dosage: UNK
     Route: 042
  4. BERINERT [Suspect]
     Active Substance: HUMAN C1-ESTERASE INHIBITOR
     Indication: PROPHYLAXIS
     Dosage: UNK
     Route: 042

REACTIONS (19)
  - Pyrexia [Recovered/Resolved]
  - Product use in unapproved indication [Unknown]
  - Bronchitis [Unknown]
  - Fatigue [Recovered/Resolved]
  - Pain [Unknown]
  - Bedridden [Unknown]
  - Infusion site swelling [Unknown]
  - Malaise [Recovered/Resolved]
  - Malaise [Unknown]
  - Oropharyngeal pain [Unknown]
  - Nervousness [Unknown]
  - Muscular weakness [Recovered/Resolved]
  - No adverse event [Unknown]
  - Lower respiratory tract infection [Unknown]
  - Malabsorption from administration site [Unknown]
  - Chest pain [Unknown]
  - Sinusitis bacterial [Recovering/Resolving]
  - Myalgia [Recovered/Resolved]
  - Sinus pain [Recovering/Resolving]

NARRATIVE: CASE EVENT DATE: 201906
